FAERS Safety Report 19855121 (Version 1)
Quarter: 2021Q3

REPORT INFORMATION
  Report Type: Report from Study
  Country: US (occurrence: US)
  Receive Date: 20210920
  Receipt Date: 20210920
  Transmission Date: 20211014
  Serious: Yes (Other)
  Sender: FDA-Public Use
  Company Number: US-SA-2021SA086667

PATIENT
  Age: 52 Year
  Sex: Female

DRUGS (2)
  1. AGALSIDASE BETA [Suspect]
     Active Substance: AGALSIDASE BETA
     Indication: FABRY^S DISEASE
     Dosage: 105 MG, QOW
     Route: 042
     Dates: start: 20190718, end: 20190823
  2. AGALSIDASE BETA [Suspect]
     Active Substance: AGALSIDASE BETA
     Dosage: 100 MG, QOW
     Route: 042
     Dates: start: 20210525

REACTIONS (7)
  - Thyroid neoplasm [Not Recovered/Not Resolved]
  - Tooth loss [Not Recovered/Not Resolved]
  - Unevaluable event [Unknown]
  - Product dose omission issue [Unknown]
  - Renal impairment [Unknown]
  - Cardiac dysfunction [Unknown]
  - White matter lesion [Not Recovered/Not Resolved]
